FAERS Safety Report 6419321-6 (Version None)
Quarter: 2009Q4

REPORT INFORMATION
  Report Type: 
  Country: None (occurrence: None)
  Receive Date: 20091029
  Receipt Date: 20091026
  Transmission Date: 20100525
  Serious: No
  Sender: FDA-Public Use
  Company Number: JP-BAYER-200913223BYL

PATIENT
  Age: 67 Year
  Sex: Male

DRUGS (5)
  1. NEXAVAR [Suspect]
     Indication: HEPATIC NEOPLASM MALIGNANT
     Dosage: TOTAL DAILY DOSE: 800 MG  UNIT DOSE: 200 MG
     Route: 048
     Dates: start: 20090731, end: 20090819
  2. NEXAVAR [Suspect]
     Dosage: UNIT DOSE: 200 MG
     Route: 048
     Dates: start: 20090819, end: 20091007
  3. BASEN [Concomitant]
     Dosage: FROM BEFORE ADMINISTRATION
     Route: 048
  4. AMARYL [Concomitant]
     Dosage: FROM BEFORE ADMINISTRATION
     Route: 048
  5. NORVASC [Concomitant]
     Dosage: FROM BEFORE ADMINISTRATION
     Route: 048

REACTIONS (3)
  - HAEMORRHAGE SUBCUTANEOUS [None]
  - PLATELET COUNT DECREASED [None]
  - PYREXIA [None]
